FAERS Safety Report 12605841 (Version 1)
Quarter: 2016Q3

REPORT INFORMATION
  Report Type: Spontaneous
  Country: US (occurrence: US)
  Receive Date: 20160729
  Receipt Date: 20160729
  Transmission Date: 20161109
  Serious: Yes (Other)
  Sender: FDA-Public Use
  Company Number: US-GLENMARK PHARMACEUTICALS INC, USA.-2016GMK023368

PATIENT

DRUGS (2)
  1. CEFTRIAXONE                        /00672202/ [Concomitant]
     Active Substance: CEFTRIAXONE
     Indication: PNEUMONIA LEGIONELLA
     Dosage: UNK
     Route: 065
  2. LEVOFLOXACIN. [Suspect]
     Active Substance: LEVOFLOXACIN
     Indication: PNEUMONIA LEGIONELLA
     Dosage: UNK
     Route: 048

REACTIONS (1)
  - Drug ineffective [Unknown]
